FAERS Safety Report 5684530-0 (Version None)
Quarter: 2008Q1

REPORT INFORMATION
  Report Type: 
  Country: None (occurrence: None)
  Receive Date: 20080328
  Receipt Date: 20070801
  Transmission Date: 20080703
  Serious: No
  Sender: FDA-Public Use
  Company Number: US-BRISTOL-MYERS SQUIBB COMPANY-13293022

PATIENT
  Age: 70 Year
  Sex: Female
  Weight: 53 kg

DRUGS (5)
  1. ERBITUX [Suspect]
     Indication: NEOPLASM MALIGNANT
     Route: 042
  2. CARBOPLATIN [Suspect]
     Indication: NEOPLASM MALIGNANT
  3. DIGOXIN [Concomitant]
  4. DARVON [Concomitant]
  5. NEURONTIN [Concomitant]

REACTIONS (1)
  - RECALL PHENOMENON [None]
